FAERS Safety Report 25576401 (Version 1)
Quarter: 2025Q3

REPORT INFORMATION
  Report Type: Spontaneous
  Country: EU (occurrence: EU)
  Receive Date: 20250718
  Receipt Date: 20250718
  Transmission Date: 20251020
  Serious: Yes (Hospitalization, Disabling)
  Sender: ALEXION PHARMACEUTICALS
  Company Number: None

PATIENT
  Age: 83 Year
  Sex: Male
  Weight: 74.8 kg

DRUGS (1)
  1. IMFINZI [Suspect]
     Active Substance: DURVALUMAB
     Indication: Squamous cell carcinoma of lung

REACTIONS (2)
  - Interstitial lung disease [Recovering/Resolving]
  - Condition aggravated [Recovering/Resolving]

NARRATIVE: CASE EVENT DATE: 20250101
